FAERS Safety Report 25210870 (Version 3)
Quarter: 2025Q2

REPORT INFORMATION
  Report Type: Report from Study
  Country: JP (occurrence: JP)
  Receive Date: 20250417
  Receipt Date: 20250530
  Transmission Date: 20250716
  Serious: Yes (Other)
  Sender: EISAI
  Company Number: JP-Eisai-202405508_LEQ_P_1

PATIENT
  Age: 79 Year
  Sex: Female
  Weight: 56.5 kg

DRUGS (5)
  1. LECANEMAB [Suspect]
     Active Substance: LECANEMAB
     Indication: Dementia Alzheimer^s type
     Dates: start: 20240709, end: 20240917
  2. LECANEMAB [Suspect]
     Active Substance: LECANEMAB
     Dates: start: 20241015
  3. AMLODIPINE [Concomitant]
     Active Substance: AMLODIPINE BESYLATE
  4. ELDECALCITOL [Concomitant]
     Active Substance: ELDECALCITOL
  5. RIVASTIGMINE [Concomitant]
     Active Substance: RIVASTIGMINE
     Indication: Dementia Alzheimer^s type

REACTIONS (1)
  - Cerebral infarction [Unknown]

NARRATIVE: CASE EVENT DATE: 20240924
